FAERS Safety Report 18490503 (Version 2)
Quarter: 2021Q1

REPORT INFORMATION
  Report Type: Spontaneous
  Country: US (occurrence: US)
  Receive Date: 20201111
  Receipt Date: 20210115
  Transmission Date: 20210419
  Serious: Yes (Hospitalization, Other)
  Sender: FDA-Public Use
  Company Number: US-UPSHER-SMITH LABORATORIES, LLC-2020USL00585

PATIENT
  Age: 46 Year
  Sex: Female
  Weight: 72.56 kg

DRUGS (21)
  1. QUDEXY XR [Suspect]
     Active Substance: TOPIRAMATE
     Indication: ESSENTIAL TREMOR
     Dosage: 200 MG, 1X/DAY
     Dates: start: 20200305, end: 2020
  2. QUDEXY XR [Suspect]
     Active Substance: TOPIRAMATE
     Indication: NEUROPATHY PERIPHERAL
     Dosage: UNK UNK, 2X/DAY
  3. METHADONE [Suspect]
     Active Substance: METHADONE HYDROCHLORIDE
     Dosage: 5 MG OR 7 MG
  4. METHADONE [Suspect]
     Active Substance: METHADONE HYDROCHLORIDE
     Dosage: 20 MG
     Dates: start: 201904, end: 2019
  5. METHADONE [Suspect]
     Active Substance: METHADONE HYDROCHLORIDE
     Dosage: 15 MG
     Dates: start: 2019, end: 201908
  6. METHADONE [Suspect]
     Active Substance: METHADONE HYDROCHLORIDE
     Dosage: 10 MG
     Dates: end: 201904
  7. GABAPENTIN. [Concomitant]
     Active Substance: GABAPENTIN
  8. TOPIRAMATE IMMEDIATE RELEASE [Suspect]
     Active Substance: TOPIRAMATE
     Dosage: 100 MG
     Dates: start: 2017, end: 2017
  9. TOPIRAMATE IMMEDIATE RELEASE [Suspect]
     Active Substance: TOPIRAMATE
     Dosage: 75 MG
     Dates: start: 2017, end: 2017
  10. TOPIRAMATE IMMEDIATE RELEASE [Suspect]
     Active Substance: TOPIRAMATE
     Dosage: UNK, 2X/DAY (MORNING AND EVENING)
  11. METHADONE [Suspect]
     Active Substance: METHADONE HYDROCHLORIDE
     Dosage: UNK (DOSE INCREASE)
     Dates: start: 201908
  12. CYMBALTA [Concomitant]
     Active Substance: DULOXETINE HYDROCHLORIDE
  13. METHADONE [Suspect]
     Active Substance: METHADONE HYDROCHLORIDE
     Dosage: 20 MG
  14. PROPRANOLOL ER (EXTENDED RELEASE) [Concomitant]
  15. TOPIRAMATE IMMEDIATE RELEASE [Suspect]
     Active Substance: TOPIRAMATE
     Indication: ESSENTIAL TREMOR
     Dosage: 25 MG
     Dates: start: 2017, end: 2017
  16. TOPIRAMATE IMMEDIATE RELEASE [Suspect]
     Active Substance: TOPIRAMATE
     Dosage: 50 MG
     Dates: start: 2017, end: 2017
  17. TOPIRAMATE IMMEDIATE RELEASE [Suspect]
     Active Substance: TOPIRAMATE
     Dosage: 200 MG
     Dates: start: 2017
  18. TOPIRAMATE IMMEDIATE RELEASE [Suspect]
     Active Substance: TOPIRAMATE
     Dosage: 100 MG
     Dates: start: 2017, end: 2017
  19. METHADONE [Suspect]
     Active Substance: METHADONE HYDROCHLORIDE
     Indication: PAIN
     Dosage: 2.5 MG, 2X/DAY
     Dates: start: 20170925
  20. METHADONE [Suspect]
     Active Substance: METHADONE HYDROCHLORIDE
     Dosage: 25 MG
     Dates: start: 2020
  21. RANITIDINE. [Concomitant]
     Active Substance: RANITIDINE
     Dosage: UNK, 4X/DAY
     Dates: end: 2020

REACTIONS (36)
  - Depressed mood [Unknown]
  - Feeling abnormal [Not Recovered/Not Resolved]
  - Abdominal pain upper [Recovered/Resolved]
  - Therapeutic response unexpected [Not Recovered/Not Resolved]
  - Procedural pain [Recovering/Resolving]
  - Confusional state [Not Recovered/Not Resolved]
  - Paraesthesia [Not Recovered/Not Resolved]
  - Weight increased [Not Recovered/Not Resolved]
  - Anorectal sensory loss [Unknown]
  - Surgery [Recovered/Resolved]
  - Drug interaction [Not Recovered/Not Resolved]
  - Abnormal behaviour [Unknown]
  - Unevaluable event [Unknown]
  - Neuropathy peripheral [Not Recovered/Not Resolved]
  - Spinal stenosis [Unknown]
  - Sensory loss [Not Recovered/Not Resolved]
  - Anal incontinence [Unknown]
  - Sexual dysfunction [Unknown]
  - Astigmatism [Unknown]
  - Nerve injury [Not Recovered/Not Resolved]
  - Amnesia [Not Recovered/Not Resolved]
  - Hypoaesthesia [Recovered/Resolved]
  - Anger [Unknown]
  - Therapeutic product effect prolonged [Not Recovered/Not Resolved]
  - Thinking abnormal [Recovering/Resolving]
  - Back disorder [Unknown]
  - Glaucoma [Not Recovered/Not Resolved]
  - Visual impairment [Recovering/Resolving]
  - Aphasia [Not Recovered/Not Resolved]
  - Personality change [Unknown]
  - Swelling [Unknown]
  - Pain [Not Recovered/Not Resolved]
  - Fatigue [Unknown]
  - Small fibre neuropathy [Unknown]
  - Memory impairment [Not Recovered/Not Resolved]
  - Aggression [Unknown]

NARRATIVE: CASE EVENT DATE: 2020
